FAERS Safety Report 19881156 (Version 1)
Quarter: 2021Q3

REPORT INFORMATION
  Report Type: Spontaneous
  Country: RU (occurrence: RU)
  Receive Date: 20210925
  Receipt Date: 20210925
  Transmission Date: 20211014
  Serious: Yes (Life-Threatening, Hospitalization, Other)
  Sender: FDA-Public Use
  Company Number: RU-AXELLIA-003869

PATIENT
  Age: 63 Year
  Sex: Female

DRUGS (9)
  1. VANCOMYCIN [Suspect]
     Active Substance: VANCOMYCIN
     Indication: MENINGITIS
     Dosage: LOADING DOSE 2 G AND THEN 2 G/DAY SYSTEMIC
     Route: 037
  2. PERINDOPRIL [Concomitant]
     Active Substance: PERINDOPRIL
  3. DESMOPRESSIN [Concomitant]
     Active Substance: DESMOPRESSIN
  4. HYDROCORTISONE. [Concomitant]
     Active Substance: HYDROCORTISONE
  5. INDAPAMIDE. [Concomitant]
     Active Substance: INDAPAMIDE
  6. NADROPARIN [Concomitant]
     Active Substance: NADROPARIN
     Indication: PROPHYLAXIS
  7. AMLODIPINE [Concomitant]
     Active Substance: AMLODIPINE BESYLATE
  8. MEROPENEM. [Concomitant]
     Active Substance: MEROPENEM
     Indication: MENINGITIS
  9. LEVOTHYROXINE. [Concomitant]
     Active Substance: LEVOTHYROXINE

REACTIONS (3)
  - Petechiae [Unknown]
  - Immune thrombocytopenia [Recovered/Resolved]
  - Vessel puncture site haemorrhage [Unknown]
